FAERS Safety Report 9620162 (Version 1)
Quarter: 2013Q4

REPORT INFORMATION
  Report Type: Spontaneous
  Country: CA (occurrence: CA)
  Receive Date: 20131014
  Receipt Date: 20131014
  Transmission Date: 20140711
  Serious: Yes (Other)
  Sender: FDA-Public Use
  Company Number: CA-MILLENNIUM PHARMACEUTICALS, INC.-2013TUS001424

PATIENT
  Sex: 0

DRUGS (2)
  1. COLCHICINE [Suspect]
     Dosage: 10 MG, UNK
  2. INDOMETHACIN                       /00003801/ [Concomitant]

REACTIONS (3)
  - Renal failure acute [Unknown]
  - Hypovolaemia [Unknown]
  - Overdose [Unknown]
